FAERS Safety Report 6105217-6 (Version None)
Quarter: 2009Q1

REPORT INFORMATION
  Report Type: 
  Country: None (occurrence: None)
  Receive Date: 20090304
  Receipt Date: 20090304
  Transmission Date: 20090719
  Serious: No
  Sender: FDA-Public Use
  Company Number: None

PATIENT
  Age: 51 Year
  Sex: Male
  Weight: 147.42 kg

DRUGS (1)
  1. FUROSEMIDE [Suspect]
     Dosage: 80 MG BID PO
     Route: 048
     Dates: start: 20090209, end: 20090218

REACTIONS (2)
  - HYPOKALAEMIA [None]
  - TACHYCARDIA [None]
